FAERS Safety Report 4732834-8 (Version None)
Quarter: 2005Q3

REPORT INFORMATION
  Report Type: 
  Country: None (occurrence: None)
  Receive Date: 20050801
  Receipt Date: 20050712
  Transmission Date: 20060218
  Serious: Yes (Life-Threatening)
  Sender: FDA-Public Use
  Company Number: ATO-05-0220

PATIENT
  Age: 63 Year
  Sex: Male

DRUGS (19)
  1. TRISENOX [Suspect]
     Indication: ACUTE PROMYELOCYTIC LEUKAEMIA
     Dosage: SEE IMAGE
     Route: 042
     Dates: start: 20050418, end: 20050425
  2. TRISENOX [Suspect]
     Indication: ACUTE PROMYELOCYTIC LEUKAEMIA
     Dosage: SEE IMAGE
     Route: 042
     Dates: start: 20050507, end: 20050512
  3. TRISENOX [Suspect]
     Indication: ACUTE PROMYELOCYTIC LEUKAEMIA
     Dosage: SEE IMAGE
     Route: 042
     Dates: start: 20050607, end: 20050613
  4. DAUNORUBICIN HYDROCHLORIDE [Concomitant]
  5. ITRACONAZOLE [Concomitant]
  6. SULFAMETHOXAZOLE [Concomitant]
  7. DALTEPARIN SODIUM [Concomitant]
  8. METHOTREXATE [Concomitant]
  9. CYTARABINE [Concomitant]
  10. DEXAMETHASONE SODIUM PHOSPHATE [Concomitant]
  11. FAMOTIDINE [Concomitant]
  12. MAGNESIUM OXIDE [Concomitant]
  13. DIAZEPAM [Concomitant]
  14. CALCIUM GLUCONATE [Concomitant]
  15. HYDROXYZINE HYDROCHLORIDE [Concomitant]
  16. METOCLOPRAMIDE [Concomitant]
  17. HALOPERIDOL [Concomitant]
  18. FLUNITRAZEPAM [Concomitant]
  19. CEFPIROME SULFATE [Concomitant]

REACTIONS (11)
  - CENTRAL NERVOUS SYSTEM LESION [None]
  - CONDITION AGGRAVATED [None]
  - DEPRESSED LEVEL OF CONSCIOUSNESS [None]
  - DISSEMINATED INTRAVASCULAR COAGULATION [None]
  - ELECTROCARDIOGRAM QT CORRECTED INTERVAL PROLONGED [None]
  - ELECTROCARDIOGRAM QT PROLONGED [None]
  - HYPOCALCAEMIA [None]
  - HYPONATRAEMIA [None]
  - LEUKOCYTOSIS [None]
  - NERVOUS SYSTEM DISORDER [None]
  - RESTLESSNESS [None]
